FAERS Safety Report 5972675-7 (Version None)
Quarter: 2008Q4

REPORT INFORMATION
  Report Type: 
  Country: None (occurrence: None)
  Receive Date: 20081201
  Receipt Date: 20081117
  Transmission Date: 20090506
  Serious: Yes (Hospitalization)
  Sender: FDA-Public Use
  Company Number: FR-JNJFOC-20081104345

PATIENT
  Sex: Male

DRUGS (8)
  1. DAKTARIN 2% [Suspect]
     Route: 002
  2. DAKTARIN 2% [Suspect]
     Indication: APHTHOUS STOMATITIS
     Route: 002
  3. XYLOCAINE [Interacting]
     Indication: DRUG USE FOR UNKNOWN INDICATION
     Route: 002
  4. MONONAXY [Interacting]
     Indication: DRUG USE FOR UNKNOWN INDICATION
     Route: 048
  5. DIAMICRON [Interacting]
     Indication: TYPE 2 DIABETES MELLITUS
     Route: 048
  6. AVODART [Concomitant]
     Route: 048
  7. ECAZIDE [Concomitant]
     Route: 048
  8. TENORMIN [Concomitant]
     Route: 048

REACTIONS (4)
  - CONFUSIONAL STATE [None]
  - DRUG INTERACTION [None]
  - HYPOGLYCAEMIA [None]
  - MALAISE [None]
